FAERS Safety Report 9757819 (Version 8)
Quarter: 2015Q4

REPORT INFORMATION
  Report Type: Report from Study
  Country: RU (occurrence: RU)
  Receive Date: 20131216
  Receipt Date: 20151023
  Transmission Date: 20160305
  Serious: Yes (Hospitalization)
  Sender: FDA-Public Use
  Company Number: RU-ROCHE-1243510

PATIENT
  Age: 56 Year
  Sex: Male
  Weight: 105.5 kg

DRUGS (17)
  1. KABIVEN [Concomitant]
     Active Substance: AMINO ACIDS\ANHYDROUS DEXTROSE\CALCIUM CHLORIDE\MAGNESIUM SULFATE HEPTAHYDRATE\POTASSIUM CHLORIDE\SODIUM ACETATE\SODIUM GLYCEROPHOSPHATE ANHYDROUS\SOYBEAN OIL
     Indication: HYPOPROTEINAEMIA
     Route: 065
     Dates: start: 20130703, end: 20130706
  2. DICYNONE [Concomitant]
     Indication: PROPHYLAXIS
     Route: 065
     Dates: start: 20130702, end: 20130706
  3. QUAMATEL [Concomitant]
     Indication: PROPHYLAXIS
     Route: 065
     Dates: start: 20130702, end: 20130706
  4. EUPHYLLINE (THEOPHYLLINE) [Concomitant]
     Active Substance: THEOPHYLLINE ANHYDROUS
     Indication: PROPHYLAXIS
     Route: 065
     Dates: start: 20130702, end: 20130706
  5. TRENTAL [Concomitant]
     Active Substance: PENTOXIFYLLINE
     Dosage: PROPHYLAXIS OF THROMBOHAEMORRHAGIC
     Route: 065
     Dates: start: 20130910, end: 20130915
  6. OMEPRAZOLE. [Concomitant]
     Active Substance: OMEPRAZOLE
     Indication: PROPHYLAXIS
     Dosage: PROPHYLAXIS OF GASTRIC EROSION
     Route: 065
     Dates: start: 20130916, end: 20130920
  7. DOPAMINE [Concomitant]
     Active Substance: DOPAMINE\DOPAMINE HYDROCHLORIDE
     Route: 065
     Dates: start: 20130702, end: 20130704
  8. QUAMATEL [Concomitant]
     Route: 065
     Dates: start: 20130910, end: 20130915
  9. EUPHYLLINE (THEOPHYLLINE) [Concomitant]
     Active Substance: THEOPHYLLINE ANHYDROUS
     Route: 065
     Dates: start: 20130910, end: 20130913
  10. RIBOXINE [Concomitant]
     Indication: PROPHYLAXIS
     Route: 065
     Dates: start: 20130916, end: 20130920
  11. OMEPRAZOLE. [Concomitant]
     Active Substance: OMEPRAZOLE
     Route: 065
     Dates: start: 20140827, end: 20140904
  12. CLEXANE [Concomitant]
     Active Substance: ENOXAPARIN SODIUM
     Indication: PROPHYLAXIS
     Route: 065
     Dates: start: 20130703, end: 20130706
  13. DICYNONE [Concomitant]
     Route: 065
     Dates: start: 20130910, end: 20130910
  14. BENDAMUSTINE [Suspect]
     Active Substance: BENDAMUSTINE
     Indication: NON-HODGKIN^S LYMPHOMA UNSPECIFIED HISTOLOGY INDOLENT
     Dosage: MOST RECENT DOSE PRIOR TO SECOND EPISDOE OF FEBRILE NEUTROPENIA: 137MG ON 15/AUG/2013?MOST RECENT DO
     Route: 042
     Dates: start: 20130305
  15. OBINUTUZUMAB [Suspect]
     Active Substance: OBINUTUZUMAB
     Indication: NON-HODGKIN^S LYMPHOMA UNSPECIFIED HISTOLOGY INDOLENT
     Dosage: MOST RECENT DOSE PRIOR TO FIRST EPISODE OF FEBRILE NEUTROPENIA: 04/JUN/2013?MOST RECENT DOSE PRIOR T
     Route: 042
     Dates: start: 20130305
  16. HYDROCORTISONE. [Concomitant]
     Active Substance: HYDROCORTISONE
     Route: 065
     Dates: start: 20130702, end: 20130704
  17. CLEXANE [Concomitant]
     Active Substance: ENOXAPARIN SODIUM
     Route: 065
     Dates: start: 20130910, end: 20130915

REACTIONS (2)
  - Febrile neutropenia [Recovered/Resolved]
  - Febrile neutropenia [Recovered/Resolved]

NARRATIVE: CASE EVENT DATE: 20130629
